FAERS Safety Report 11176155 (Version 1)
Quarter: 2015Q2

REPORT INFORMATION
  Report Type: Report from Study
  Country: GB (occurrence: GB)
  Receive Date: 20150609
  Receipt Date: 20150609
  Transmission Date: 20150821
  Serious: Yes (Other)
  Sender: FDA-Public Use
  Company Number: PHHY2015GB067287

PATIENT
  Sex: Female

DRUGS (1)
  1. OMNITROPE [Suspect]
     Active Substance: SOMATROPIN
     Indication: GESTATIONAL AGE TEST ABNORMAL
     Dosage: 0.34 MG/KG, UNK
     Route: 065
     Dates: start: 20120619

REACTIONS (2)
  - Keratitis bacterial [Recovered/Resolved]
  - Ventricular septal defect [Recovered/Resolved]

NARRATIVE: CASE EVENT DATE: 20130205
